FAERS Safety Report 12328798 (Version 3)
Quarter: 2016Q3

REPORT INFORMATION
  Report Type: Spontaneous
  Country: US (occurrence: US)
  Receive Date: 20160503
  Receipt Date: 20160808
  Transmission Date: 20161109
  Serious: No
  Sender: FDA-Public Use
  Company Number: US-BEH-2015050834

PATIENT
  Sex: Female
  Weight: 85 kg

DRUGS (38)
  1. HIZENTRA [Suspect]
     Active Substance: HUMAN IMMUNOGLOBULIN G
     Indication: HYPOGAMMAGLOBULINAEMIA
     Dosage: 4 G 20 ML VIAL
     Route: 058
  2. FLUTICASONE PROPIONATE. [Concomitant]
     Active Substance: FLUTICASONE PROPIONATE
     Dosage: 2 PUFFS
     Route: 045
  3. ENTOCORT EC [Concomitant]
     Active Substance: BUDESONIDE
     Dosage: 1 CAP  (3 MG)
     Route: 048
  4. THEO-DUR [Concomitant]
     Active Substance: THEOPHYLLINE ANHYDROUS
     Dosage: 1 TAB (200 MG)
     Route: 048
  5. ADVAIR HFA [Concomitant]
     Active Substance: FLUTICASONE PROPIONATE\SALMETEROL XINAFOATE
     Dosage: 1 PUFF QAMPM (500 -100 MCG)
     Route: 055
  6. CIPROFLOXACIN. [Concomitant]
     Active Substance: CIPROFLOXACIN
     Dosage: 1 500 TAB DAILY
     Route: 048
  7. TOPAMAX [Concomitant]
     Active Substance: TOPIRAMATE
     Dosage: 1 TAB (200 MG) AS DIRECTED
     Route: 048
  8. KLOR-CON [Concomitant]
     Active Substance: POTASSIUM CHLORIDE
     Dosage: 400 MEQ (20 MEQ PACKET)
     Route: 048
  9. HYDROCORTISONE. [Concomitant]
     Active Substance: HYDROCORTISONE
     Dosage: AS NECESSARY
  10. TYLENOL WITH CODEINE [Concomitant]
     Active Substance: ACETAMINOPHEN\CODEINE PHOSPHATE
     Dosage: 6 DOSES
     Route: 048
  11. SINGULAIR [Concomitant]
     Active Substance: MONTELUKAST SODIUM
     Route: 048
  12. PAXIL [Concomitant]
     Active Substance: PAROXETINE HYDROCHLORIDE
     Route: 048
  13. TOPAMAX [Concomitant]
     Active Substance: TOPIRAMATE
     Route: 048
  14. LASIX [Concomitant]
     Active Substance: FUROSEMIDE
     Route: 048
  15. POLYSPORIN [Concomitant]
     Active Substance: BACITRACIN ZINC\POLYMYXIN B SULFATE
     Dosage: 1% AS DIRECTED
     Route: 061
  16. XANAX [Concomitant]
     Active Substance: ALPRAZOLAM
     Route: 048
  17. PRILOSEC [Concomitant]
     Active Substance: OMEPRAZOLE MAGNESIUM
     Route: 048
  18. HIZENTRA [Suspect]
     Active Substance: HUMAN IMMUNOGLOBULIN G
     Indication: HYPOGAMMAGLOBULINAEMIA
     Dosage: 1 GM 5 ML VIAL
     Route: 058
  19. METOCLOPRAMIDE. [Concomitant]
     Active Substance: METOCLOPRAMIDE
     Dosage: 1 CAPLET (10 MG)
     Route: 048
  20. ALEVE [Concomitant]
     Active Substance: NAPROXEN SODIUM
     Route: 048
  21. AMLODIPINE BESYLATE. [Concomitant]
     Active Substance: AMLODIPINE BESYLATE
     Dosage: 1 TAB (5 MG) DAILY
     Route: 048
  22. DIOVAN [Concomitant]
     Active Substance: VALSARTAN
     Dosage: 1 TAB (40 MG) DAILY
     Route: 048
  23. VERAMYST [Concomitant]
     Active Substance: FLUTICASONE FUROATE
     Dosage: 1 SPRAY (27.5)
     Route: 045
  24. TYLENOL [Concomitant]
     Active Substance: ACETAMINOPHEN
     Dosage: 1 TAB (325 MG)
     Route: 048
  25. ZOMIG [Concomitant]
     Active Substance: ZOLMITRIPTAN
     Route: 048
  26. ALBUTEROL. [Concomitant]
     Active Substance: ALBUTEROL
     Dosage: 90 MCG 2 PUFFS QID
     Route: 055
  27. LAMICTAL [Concomitant]
     Active Substance: LAMOTRIGINE
     Dosage: 2 QAMPM
     Route: 048
  28. RANITIDINE. [Concomitant]
     Active Substance: RANITIDINE
     Dosage: 2  (150 MG) TABS DAILY
     Route: 048
  29. LOVENOX [Concomitant]
     Active Substance: ENOXAPARIN SODIUM
     Dosage: PREFILLED SYRN
     Route: 058
  30. HYDROCHLORTHIAZIDE [Concomitant]
     Active Substance: HYDROCHLOROTHIAZIDE
     Dosage: 1 TAB (12.5 MG) DAILY
     Route: 048
  31. VERAPAMIL ER [Concomitant]
     Active Substance: VERAPAMIL HYDROCHLORIDE
     Dosage: 2 TAB QAM, 1 TAB QPM
     Route: 048
  32. ALBUTEROL. [Concomitant]
     Active Substance: ALBUTEROL
     Dosage: 0.083% (1 VIAL 3 TIMES EVERY 4 HRS) NEBULIZER
  33. PREDNISONE. [Concomitant]
     Active Substance: PREDNISONE
     Dosage: 1 TAB (20 MG) DAILY
     Route: 048
  34. PERCOCET [Concomitant]
     Active Substance: ACETAMINOPHEN\OXYCODONE HYDROCHLORIDE
     Indication: PAIN
     Dosage: 7.5- 325 MG TAB (30 -1300 MG)
     Route: 048
  35. DOXYCYCLINE HYCLATE. [Concomitant]
     Active Substance: DOXYCYCLINE HYCLATE
     Dosage: 1 TAB (100 MG) DAILY
     Route: 048
  36. PATANASE [Concomitant]
     Active Substance: OLOPATADINE HYDROCHLORIDE
     Dosage: 0.6% NASAL SPRAY
     Route: 045
  37. TRILEPTAL [Concomitant]
     Active Substance: OXCARBAZEPINE
     Dosage: QAMPM
     Route: 048
  38. MAXALT [Concomitant]
     Active Substance: RIZATRIPTAN BENZOATE
     Route: 048

REACTIONS (5)
  - Administration site swelling [Recovered/Resolved]
  - Infusion site pruritus [Recovering/Resolving]
  - Administration site bruise [Unknown]
  - Infusion site nodule [Unknown]
  - Infusion site haemorrhage [Unknown]
